FAERS Safety Report 5297712-7 (Version None)
Quarter: 2007Q2

REPORT INFORMATION
  Report Type: 
  Country: None (occurrence: None)
  Receive Date: 20070409
  Receipt Date: 20070328
  Transmission Date: 20071010
  Serious: Yes (Death, Other)
  Sender: FDA-Public Use
  Company Number: MEDI-0005509

PATIENT
  Age: 54 Year
  Sex: Male

DRUGS (2)
  1. ETHYOL [Suspect]
     Dosage: INTRAVENOUS (NOT OTHERWISE SPECIFIED)
     Route: 042
     Dates: start: 19970618, end: 19970629
  2. CHEMORADIOTHERAPY [Concomitant]

REACTIONS (6)
  - ACUTE MYOCARDIAL INFARCTION [None]
  - AORTIC ARTERIOSCLEROSIS [None]
  - ARTERIOSCLEROSIS CORONARY ARTERY [None]
  - BACK PAIN [None]
  - INTRACARDIAC THROMBUS [None]
  - VENTRICULAR FIBRILLATION [None]
